FAERS Safety Report 7898755-7 (Version None)
Quarter: 2011Q4

REPORT INFORMATION
  Report Type: 
  Country: None (occurrence: None)
  Receive Date: 20111107
  Receipt Date: 20110325
  Transmission Date: 20120403
  Serious: No
  Sender: FDA-Public Use
  Company Number: US-ABBOTT-11P-163-0714624-00

PATIENT
  Sex: Male
  Weight: 90.8 kg

DRUGS (5)
  1. IBUPROFEN [Suspect]
     Indication: PRODUCT USED FOR UNKNOWN INDICATION
     Dosage: ONCE A WEEK IN SMALL DOSES
  2. TRICOR [Suspect]
     Indication: BLOOD TRIGLYCERIDES INCREASED
     Dates: start: 20110101
  3. EPZICOM [Concomitant]
     Indication: HIV INFECTION
  4. REYATAZ [Concomitant]
     Indication: HIV INFECTION
  5. NORVIR [Concomitant]
     Indication: HIV INFECTION

REACTIONS (3)
  - DRUG HYPERSENSITIVITY [None]
  - URTICARIA [None]
  - LIP SWELLING [None]
